FAERS Safety Report 19056773 (Version 1)
Quarter: 2021Q1

REPORT INFORMATION
  Report Type: Spontaneous
  Country: US (occurrence: US)
  Receive Date: 20210325
  Receipt Date: 20210325
  Transmission Date: 20210420
  Serious: Yes (Other)
  Sender: FDA-Public Use
  Company Number: US-BION-009608

PATIENT
  Sex: Female

DRUGS (1)
  1. NAPROXEN SODIUM CAPSULES BACK + MUSCLE PAIN 180 CT [Suspect]
     Active Substance: NAPROXEN SODIUM
     Indication: ENDOMETRIOSIS
     Route: 048

REACTIONS (3)
  - Drug effect less than expected [Not Recovered/Not Resolved]
  - Foreign body in throat [Unknown]
  - Product size issue [Unknown]
